FAERS Safety Report 5563829-2 (Version None)
Quarter: 2007Q4

REPORT INFORMATION
  Report Type: 
  Country: None (occurrence: None)
  Receive Date: 20071217
  Receipt Date: 20070907
  Transmission Date: 20080405
  Serious: No
  Sender: FDA-Public Use
  Company Number: US-ASTRAZENECA-2007UW21288

PATIENT
  Age: 67 Year
  Weight: 56.7 kg

DRUGS (4)
  1. CRESTOR [Suspect]
     Indication: DYSLIPIDAEMIA
     Route: 048
     Dates: start: 20040101, end: 20070101
  2. CRESTOR [Suspect]
     Route: 048
     Dates: start: 20070101
  3. VITAMIN CAP [Concomitant]
  4. TYLENOL [Concomitant]

REACTIONS (3)
  - FEELING HOT [None]
  - MYALGIA [None]
  - PALPITATIONS [None]
